FAERS Safety Report 9166196 (Version 1)
Quarter: 2013Q1

REPORT INFORMATION
  Report Type: Spontaneous
  Country: US (occurrence: US)
  Receive Date: 20130315
  Receipt Date: 20130315
  Transmission Date: 20140127
  Serious: No
  Sender: FDA-Public Use
  Company Number: US-B.I. PHARMACEUTICALS,INC./RIDGEFIELD-2013-BI-06623BP

PATIENT
  Age: 82 Year
  Sex: Male
  Weight: 60 kg

DRUGS (4)
  1. PRADAXA [Suspect]
     Indication: ATRIAL FIBRILLATION
     Dosage: 300 MG
     Route: 048
     Dates: start: 201212
  2. VITAMIN D [Concomitant]
     Indication: VITAMIN SUPPLEMENTATION
     Dosage: 7142.8571 U
     Route: 048
     Dates: start: 2011
  3. DIGOXIN [Concomitant]
     Indication: CARDIAC DISORDER
     Dosage: 0.25 MG
     Route: 048
     Dates: start: 2012
  4. FENOFIBRATE [Concomitant]
     Indication: BLOOD CHOLESTEROL INCREASED
     Dosage: 200 MG
     Route: 048
     Dates: start: 2012

REACTIONS (1)
  - Constipation [Not Recovered/Not Resolved]
